FAERS Safety Report 25330115 (Version 2)
Quarter: 2025Q3

REPORT INFORMATION
  Report Type: Spontaneous
  Country: EU (occurrence: EU)
  Receive Date: 20250519
  Receipt Date: 20250728
  Transmission Date: 20251020
  Serious: Yes (Death, Other)
  Sender: DAIICHI
  Company Number: EU-DSJP-DS-2025-141624-ES

PATIENT
  Age: 63 Year
  Sex: Female

DRUGS (2)
  1. TRASTUZUMAB DERUXTECAN [Suspect]
     Active Substance: TRASTUZUMAB DERUXTECAN
     Indication: HER2 positive breast cancer
     Route: 065
     Dates: start: 20250320, end: 20250320
  2. TRASTUZUMAB DERUXTECAN [Suspect]
     Active Substance: TRASTUZUMAB DERUXTECAN
     Route: 065
     Dates: start: 20250410, end: 20250410

REACTIONS (8)
  - Death [Fatal]
  - Acute respiratory failure [Unknown]
  - Metastases to lung [Unknown]
  - Respiratory tract infection [Unknown]
  - Pulmonary embolism [Unknown]
  - Cardiac failure congestive [Unknown]
  - Thrombosis [Unknown]
  - Pneumonitis [Unknown]

NARRATIVE: CASE EVENT DATE: 20250507
